FAERS Safety Report 25394199 (Version 1)
Quarter: 2025Q2

REPORT INFORMATION
  Report Type: Spontaneous
  Country: US (occurrence: US)
  Receive Date: 20250604
  Receipt Date: 20250604
  Transmission Date: 20250716
  Serious: No
  Sender: AMNEAL
  Company Number: US-AMNEAL PHARMACEUTICALS-2024-AMRX-03172

PATIENT

DRUGS (1)
  1. BUPRENORPHINE TRANSDERMAL SYSTEM [Suspect]
     Active Substance: BUPRENORPHINE
     Indication: Pain
     Route: 062
     Dates: start: 20240731

REACTIONS (10)
  - Application site exfoliation [Unknown]
  - Application site scar [Unknown]
  - Skin erosion [Unknown]
  - Wound [Unknown]
  - Application site erythema [Unknown]
  - Application site swelling [Unknown]
  - Application site vesicles [Unknown]
  - Wound secretion [Unknown]
  - Application site burn [Unknown]
  - Wrong technique in product usage process [Unknown]
